FAERS Safety Report 5049762-3 (Version None)
Quarter: 2006Q3

REPORT INFORMATION
  Report Type: 
  Country: None (occurrence: None)
  Receive Date: 20060712
  Receipt Date: 20060707
  Transmission Date: 20061208
  Serious: Yes (Other)
  Sender: FDA-Public Use
  Company Number: US-SANOFI-SYNTHELABO-A01200605293

PATIENT
  Age: 17 Year
  Sex: Male

DRUGS (2)
  1. SERTRALINE [Concomitant]
     Route: 048
  2. ARALEN [Suspect]
     Dosage: ONCE WEEKLY TIMES 3 WEEKS
     Route: 048

REACTIONS (4)
  - CIRCULATORY COLLAPSE [None]
  - PANIC ATTACK [None]
  - SOMNOLENCE [None]
  - UNRESPONSIVE TO STIMULI [None]
